FAERS Safety Report 21902412 (Version 1)
Quarter: 2023Q1

REPORT INFORMATION
  Report Type: Report from Study
  Country: US (occurrence: US)
  Receive Date: 20230124
  Receipt Date: 20230124
  Transmission Date: 20230417
  Serious: Yes (Death, Other)
  Sender: FDA-Public Use
  Company Number: US-SUN PHARMACEUTICAL INDUSTRIES LTD-2023R1-374243

PATIENT

DRUGS (1)
  1. NALTREXONE [Suspect]
     Active Substance: NALTREXONE
     Indication: Alcohol use disorder
     Dosage: UNK
     Route: 048

REACTIONS (3)
  - Status epilepticus [Fatal]
  - Pneumonia [Fatal]
  - Therapeutic product effect incomplete [Unknown]
